FAERS Safety Report 11938375 (Version 7)
Quarter: 2018Q1

REPORT INFORMATION
  Report Type: Spontaneous
  Country: US (occurrence: US)
  Receive Date: 20160122
  Receipt Date: 20180306
  Transmission Date: 20180508
  Serious: Yes (Other)
  Sender: FDA-Public Use
  Company Number: US-ASTRAZENECA-2012BM13225

PATIENT
  Age: 27880 Day
  Sex: Female
  Weight: 110.2 kg

DRUGS (24)
  1. LASIX [Concomitant]
     Active Substance: FUROSEMIDE
     Route: 048
  2. ALBUTEROL. [Concomitant]
     Active Substance: ALBUTEROL
     Dosage: AS REQUIRED
     Route: 055
  3. BYDUREON [Suspect]
     Active Substance: EXENATIDE
     Indication: TYPE 2 DIABETES MELLITUS
     Route: 058
     Dates: start: 201207, end: 20180125
  4. BYDUREON [Suspect]
     Active Substance: EXENATIDE
     Indication: TYPE 2 DIABETES MELLITUS
     Route: 058
  5. LISINOPRIL. [Suspect]
     Active Substance: LISINOPRIL
     Route: 048
  6. METFORMIN [Concomitant]
     Active Substance: METFORMIN HYDROCHLORIDE
     Indication: TYPE 2 DIABETES MELLITUS
     Route: 048
  7. PENICILLIN NOS [Concomitant]
     Active Substance: PENICILLIN
     Indication: INFECTION
     Route: 048
  8. MORPHINE [Concomitant]
     Active Substance: MORPHINE
     Indication: PAIN
     Route: 058
  9. STARLIX [Concomitant]
     Active Substance: NATEGLINIDE
     Dosage: TAKE 1 PILL THREE TIMES A DAY FOR 1 MONTH
     Route: 048
  10. VALIUM [Concomitant]
     Active Substance: DIAZEPAM
     Dosage: 5.0MG AS REQUIRED
     Route: 048
  11. HYDROCODONE [Concomitant]
     Active Substance: HYDROCODONE
     Dosage: AS REQUIRED
  12. GABAPENTIN. [Concomitant]
     Active Substance: GABAPENTIN
     Route: 048
  13. PRILOSEC [Concomitant]
     Active Substance: OMEPRAZOLE MAGNESIUM
     Route: 048
  14. LASIX [Concomitant]
     Active Substance: FUROSEMIDE
     Route: 048
  15. HYDROCORTISONE. [Concomitant]
     Active Substance: HYDROCORTISONE
     Route: 048
  16. ADVAIR DISKUS [Concomitant]
     Active Substance: FLUTICASONE PROPIONATE\SALMETEROL XINAFOATE
     Dosage: AS REQUIRED
  17. NYSTOP [Concomitant]
     Active Substance: NYSTATIN
     Dosage: AS REQUIRED
  18. OMEPRAZOLE. [Suspect]
     Active Substance: OMEPRAZOLE
     Route: 048
  19. POTASSIUM CHLORIDE. [Concomitant]
     Active Substance: POTASSIUM CHLORIDE
     Route: 048
  20. SERTRALINE [Concomitant]
     Active Substance: SERTRALINE HYDROCHLORIDE
     Route: 048
  21. TEMAZEPAM. [Concomitant]
     Active Substance: TEMAZEPAM
     Route: 048
  22. METHOCARBAMOL. [Concomitant]
     Active Substance: METHOCARBAMOL
     Route: 048
  23. PROCYLCE MULTIVITAMIN WITH MINERALS [Concomitant]
     Route: 048
  24. VESICARE [Concomitant]
     Active Substance: SOLIFENACIN SUCCINATE
     Route: 048

REACTIONS (35)
  - Wheezing [Unknown]
  - Diabetes mellitus inadequate control [Unknown]
  - Obesity [Unknown]
  - Oedema peripheral [Unknown]
  - Alopecia [Unknown]
  - Hypoglycaemia [Unknown]
  - Drug dose omission [Not Recovered/Not Resolved]
  - Cough [Unknown]
  - Essential hypertension [Unknown]
  - Breath sounds abnormal [Unknown]
  - Pedal pulse decreased [Unknown]
  - Headache [Unknown]
  - Gait disturbance [Unknown]
  - Adrenal insufficiency [Unknown]
  - Anxiety [Unknown]
  - Hyperkeratosis [Unknown]
  - Chronic kidney disease [Unknown]
  - Device malfunction [Unknown]
  - Faeces discoloured [Not Recovered/Not Resolved]
  - Visual impairment [Unknown]
  - Localised infection [Unknown]
  - Dry skin [Unknown]
  - Nausea [Not Recovered/Not Resolved]
  - Breast cancer female [Unknown]
  - Cushing^s syndrome [Unknown]
  - Limb injury [Unknown]
  - Insomnia [Unknown]
  - Blood glucose fluctuation [Unknown]
  - Onychoclasis [Unknown]
  - Product compounding quality issue [Unknown]
  - Pain [Not Recovered/Not Resolved]
  - Sleep disorder [Unknown]
  - Neuropathy peripheral [Unknown]
  - Fatigue [Not Recovered/Not Resolved]
  - Weight decreased [Unknown]

NARRATIVE: CASE EVENT DATE: 20120719
